FAERS Safety Report 6380019-4 (Version None)
Quarter: 2009Q3

REPORT INFORMATION
  Report Type: 
  Country: None (occurrence: None)
  Receive Date: 20090928
  Receipt Date: 20090918
  Transmission Date: 20100115
  Serious: Yes (Death)
  Sender: FDA-Public Use
  Company Number: US-BAXTER-2009BH014452

PATIENT
  Age: 59 Year
  Sex: Female

DRUGS (19)
  1. CYCLOPHOSPHAMIDE [Suspect]
     Indication: NON-HODGKIN'S LYMPHOMA
     Route: 065
     Dates: start: 19990101
  2. RITUXIMAB [Suspect]
     Indication: NON-HODGKIN'S LYMPHOMA
     Route: 065
     Dates: start: 20080601
  3. RITUXIMAB [Suspect]
     Route: 065
     Dates: start: 20040101
  4. RITUXIMAB [Suspect]
     Route: 065
     Dates: start: 20020101
  5. RITUXIMAB [Suspect]
     Route: 065
     Dates: start: 19990101
  6. VINCRISTINE SULFATE GENERIC [Suspect]
     Indication: NON-HODGKIN'S LYMPHOMA
     Route: 065
     Dates: start: 19990101
  7. PREDNISONE TAB [Suspect]
     Indication: NON-HODGKIN'S LYMPHOMA
     Route: 065
     Dates: start: 19990101
  8. FLUDARABINE PHOSPHATE [Suspect]
     Indication: NON-HODGKIN'S LYMPHOMA
     Route: 065
     Dates: start: 20040101
  9. FLUDARABINE PHOSPHATE [Suspect]
     Route: 065
     Dates: start: 20020101
  10. MITOXANTRONE HYDROCHLORIDE [Suspect]
     Indication: NON-HODGKIN'S LYMPHOMA
     Route: 065
     Dates: start: 20020101
  11. MITOXANTRONE HYDROCHLORIDE [Suspect]
     Route: 065
     Dates: start: 20040101
  12. DEXAMETHASONE 4MG TAB [Suspect]
     Indication: NON-HODGKIN'S LYMPHOMA
     Route: 065
     Dates: start: 20040101
  13. DEXAMETHASONE 4MG TAB [Suspect]
     Route: 065
     Dates: start: 20020101
  14. IBRITUMOMAB TIUXETAN [Suspect]
     Indication: NON-HODGKIN'S LYMPHOMA
     Route: 065
     Dates: start: 20070101
  15. IBRITUMOMAB TIUXETAN [Suspect]
     Route: 065
     Dates: start: 20050101
  16. ETOPOSIDE [Suspect]
     Indication: NON-HODGKIN'S LYMPHOMA
     Route: 065
     Dates: start: 20080601
  17. METHYLPREDNISOLONE 4MG TAB [Suspect]
     Indication: NON-HODGKIN'S LYMPHOMA
     Route: 048
     Dates: start: 20080601
  18. CYTARABINE [Suspect]
     Indication: NON-HODGKIN'S LYMPHOMA
     Route: 065
     Dates: start: 20080601
  19. CISPLATIN [Suspect]
     Indication: NON-HODGKIN'S LYMPHOMA
     Route: 065
     Dates: start: 20080601

REACTIONS (1)
  - PROGRESSIVE MULTIFOCAL LEUKOENCEPHALOPATHY [None]
